FAERS Safety Report 10052723 (Version 1)
Quarter: 2014Q2

REPORT INFORMATION
  Report Type: Spontaneous
  Country: US (occurrence: US)
  Receive Date: 20140402
  Receipt Date: 20140402
  Transmission Date: 20141212
  Serious: Yes (Hospitalization)
  Sender: FDA-Public Use
  Company Number: US-PFIZER INC-2014087826

PATIENT
  Age: 45 Year
  Sex: Female

DRUGS (1)
  1. LYRICA [Suspect]
     Dosage: 100 MG, 2X/DAY
     Dates: start: 201401

REACTIONS (4)
  - Clostridium difficile colitis [Unknown]
  - Migraine [Unknown]
  - Asthenia [Unknown]
  - Fatigue [Unknown]
